FAERS Safety Report 6840021-2 (Version None)
Quarter: 2010Q3

REPORT INFORMATION
  Report Type: 
  Country: None (occurrence: None)
  Receive Date: 20100714
  Receipt Date: 20100702
  Transmission Date: 20110219
  Serious: Yes (Death, Hospitalization)
  Sender: FDA-Public Use
  Company Number: GB-ROCHE-591782

PATIENT
  Sex: Female
  Weight: 79.2 kg

DRUGS (9)
  1. BEVACIZUMAB [Suspect]
     Dosage: LAST DOSE PRIOR TO SAE: 29 AUG 2008, PERMANENTLY DISCONTINUED.
     Route: 042
     Dates: start: 20080516, end: 20081015
  2. CAPECITABINE [Suspect]
     Dosage: FREQUENCY: BD
     Route: 048
     Dates: start: 20080516, end: 20080718
  3. CAPECITABINE [Suspect]
     Dosage: REDUCED AND THEN PERMANENTLY DISCONTINUED, LAST DOSE PRIOR EVENT: 03 OCTOBER 2008
     Route: 048
     Dates: start: 20080718, end: 20081010
  4. MORPHINE SULFATE [Concomitant]
     Dosage: DRUG NAME: MORPHINE SULPHATE
     Dates: start: 20080808, end: 20081020
  5. DICLOFENAC SODIUM [Concomitant]
     Dates: start: 20080808, end: 20081020
  6. CYCLIZINE [Concomitant]
     Dates: start: 20080606, end: 20081020
  7. OMEPRAZOLE [Concomitant]
     Dates: start: 20080606, end: 20081020
  8. ACETAMINOPHEN [Concomitant]
     Dates: end: 20081020
  9. NULYTELY [Concomitant]
     Dosage: TDD: 1 SACHET
     Dates: end: 20081016

REACTIONS (4)
  - DEEP VEIN THROMBOSIS [None]
  - HEPATIC RUPTURE [None]
  - METASTASES TO LIVER [None]
  - PULMONARY EMBOLISM [None]
